FAERS Safety Report 5225711-X (Version None)
Quarter: 2007Q1

REPORT INFORMATION
  Report Type: 
  Country: None (occurrence: None)
  Receive Date: 20070126
  Receipt Date: 20070115
  Transmission Date: 20070707
  Serious: No
  Sender: FDA-Public Use
  Company Number: FR-1160279

PATIENT
  Age: 66 Hour
  Sex: Female

DRUGS (2)
  1. AZOPT [Suspect]
     Dosage: EYE DROPS ONCE OPHTHALMIC
     Route: 047
     Dates: start: 20060730, end: 20060730
  2. AUGMENTIN '125' [Concomitant]

REACTIONS (4)
  - ANAPHYLACTIC SHOCK [None]
  - DRUG INEFFECTIVE [None]
  - FACE OEDEMA [None]
  - URTICARIA [None]
